FAERS Safety Report 11286029 (Version 1)
Quarter: 2015Q3

REPORT INFORMATION
  Report Type: Spontaneous
  Country: US (occurrence: None)
  Receive Date: 20150717
  Receipt Date: 20150717
  Transmission Date: 20151125
  Serious: Yes (Life-Threatening, Hospitalization)
  Sender: FDA-Public Use
  Company Number: None

PATIENT
  Age: 55 Year
  Sex: Male
  Weight: 109.1 kg

DRUGS (1)
  1. LOSARTAN. [Suspect]
     Active Substance: LOSARTAN
     Indication: HYPERTENSION
     Dosage: 50 MG, EVERY DAY, PO
     Route: 048
     Dates: start: 20121227, end: 20140709

REACTIONS (4)
  - Swelling face [None]
  - Angioedema [None]
  - Obstructive airways disorder [None]
  - Hypersensitivity [None]

NARRATIVE: CASE EVENT DATE: 20140708
